FAERS Safety Report 24196662 (Version 2)
Quarter: 2024Q3

REPORT INFORMATION
  Report Type: Spontaneous
  Country: RU (occurrence: RU)
  Receive Date: 20240810
  Receipt Date: 20240911
  Transmission Date: 20241017
  Serious: Yes (Other)
  Sender: ABBVIE
  Company Number: RU-LUNDBECK-DKLU4002633

PATIENT

DRUGS (1)
  1. ESCITALOPRAM [Suspect]
     Active Substance: ESCITALOPRAM OXALATE
     Indication: Anxiety disorder
     Route: 065

REACTIONS (3)
  - Multiple sclerosis relapse [Unknown]
  - Irritability [Unknown]
  - Mood altered [Unknown]

NARRATIVE: CASE EVENT DATE: 20230901
